FAERS Safety Report 15134039 (Version 2)
Quarter: 2018Q3

REPORT INFORMATION
  Report Type: Spontaneous
  Country: ES (occurrence: ES)
  Receive Date: 20180712
  Receipt Date: 20180814
  Transmission Date: 20181010
  Serious: Yes (Hospitalization)
  Sender: FDA-Public Use
  Company Number: PHHY2018ES036972

PATIENT
  Age: 79 Year
  Sex: Female

DRUGS (7)
  1. DULOXETINA [Suspect]
     Active Substance: DULOXETINE
     Indication: ADJUSTMENT DISORDER
     Dosage: UNK
     Route: 048
     Dates: start: 20170613, end: 20170625
  2. LEVOFLOXACIN. [Suspect]
     Active Substance: LEVOFLOXACIN
     Indication: PLEURAL EFFUSION
     Route: 065
     Dates: start: 20170602, end: 20170626
  3. METOCLOPRAMIDE. [Suspect]
     Active Substance: METOCLOPRAMIDE
     Indication: VOMITING
     Dosage: UNK
     Route: 048
  4. DALACIN [Suspect]
     Active Substance: CLINDAMYCIN
     Indication: PRODUCT USED FOR UNKNOWN INDICATION
     Dosage: 300 MG, Q8H
     Route: 048
     Dates: start: 20170609
  5. TARGIN [Suspect]
     Active Substance: NALOXONE HYDROCHLORIDE\OXYCODONE HYDROCHLORIDE
     Indication: CAUDA EQUINA SYNDROME
     Dosage: 1 DF, Q12H
     Route: 048
     Dates: start: 20170613
  6. HALOPERIDOL. [Suspect]
     Active Substance: HALOPERIDOL
     Indication: PRODUCT USED FOR UNKNOWN INDICATION
     Dosage: 10 GTT, UNK
     Route: 048
     Dates: start: 20170613
  7. BEMIPARIN [Suspect]
     Active Substance: BEMIPARIN
     Indication: PROPHYLAXIS
     Dosage: 3500 IU, QD
     Route: 058
     Dates: start: 20170622

REACTIONS (2)
  - Pruritus [Recovered/Resolved]
  - Rash maculo-papular [Recovered/Resolved]

NARRATIVE: CASE EVENT DATE: 20170622
